FAERS Safety Report 6922710-4 (Version None)
Quarter: 2010Q3

REPORT INFORMATION
  Report Type: 
  Country: None (occurrence: None)
  Receive Date: 20100813
  Receipt Date: 20100809
  Transmission Date: 20110219
  Serious: Yes (Death, Hospitalization, Other)
  Sender: FDA-Public Use
  Company Number: FR-ABBOTT-10P-056-0663287-00

PATIENT
  Sex: Female

DRUGS (7)
  1. NORVIR [Suspect]
     Indication: HIV INFECTION
     Dates: start: 20100703
  2. ISENTRESS [Suspect]
     Indication: HIV INFECTION
     Route: 048
     Dates: end: 20100702
  3. INTELENCE [Suspect]
     Indication: HIV INFECTION
     Route: 048
     Dates: end: 20100702
  4. COAPROVEL [Suspect]
     Indication: HYPERTENSION
     Route: 048
     Dates: end: 20100702
  5. ABACAVIR SULFATE AND LAMIVUDINE [Suspect]
     Indication: HIV INFECTION
     Route: 048
     Dates: start: 20100703
  6. PREZISTA [Suspect]
     Indication: PRODUCT USED FOR UNKNOWN INDICATION
     Route: 048
     Dates: start: 20100703
  7. ALDOMET [Suspect]
     Indication: HYPERTENSION
     Dates: start: 20100703

REACTIONS (1)
  - ABORTION SPONTANEOUS [None]
